FAERS Safety Report 20616621 (Version 1)
Quarter: 2022Q1

REPORT INFORMATION
  Report Type: Spontaneous
  Country: JP (occurrence: JP)
  Receive Date: 20220321
  Receipt Date: 20220321
  Transmission Date: 20220423
  Serious: Yes (Disabling)
  Sender: FDA-Public Use
  Company Number: JP-ALLERGAN-2206500US

PATIENT
  Sex: Female

DRUGS (8)
  1. ALPHAGAN P [Suspect]
     Active Substance: BRIMONIDINE TARTRATE
     Indication: Glaucoma
     Dosage: 2 GTT
     Route: 047
     Dates: start: 20131211
  2. LUMIGAN [Concomitant]
     Active Substance: BIMATOPROST
     Indication: Intraocular pressure increased
     Dosage: 1 GTT, QD
     Route: 047
     Dates: start: 20201209
  3. TRAVATAN Z [Concomitant]
     Active Substance: TRAVOPROST
     Indication: Intraocular pressure increased
     Dosage: 1 GTT, QD
     Route: 047
     Dates: start: 20150119, end: 20201208
  4. BRINZOLAMIDE\TIMOLOL MALEATE [Concomitant]
     Active Substance: BRINZOLAMIDE\TIMOLOL MALEATE
     Indication: Intraocular pressure increased
     Dosage: 2 GTT, QD
     Route: 047
     Dates: start: 20151117
  5. RIPASUDIL HYDROCHLORIDE DIHYDRATE [Concomitant]
     Active Substance: RIPASUDIL HYDROCHLORIDE DIHYDRATE
     Indication: Intraocular pressure increased
     Dosage: 2 GTT, QD
     Route: 047
     Dates: start: 20170726
  6. ALESION [Concomitant]
     Active Substance: EPINASTINE HYDROCHLORIDE
     Indication: Hypersensitivity
     Dosage: UNK, PRN
  7. XALATAN [Concomitant]
     Active Substance: LATANOPROST
     Indication: Intraocular pressure increased
     Dosage: 2 GTT, QD
     Route: 047
     Dates: start: 20040121, end: 20150119
  8. COSOPT [Concomitant]
     Active Substance: DORZOLAMIDE HYDROCHLORIDE\TIMOLOL MALEATE
     Indication: Intraocular pressure increased
     Dosage: 2 GTT, QD
     Route: 047
     Dates: start: 20130517, end: 20151116

REACTIONS (1)
  - Corneal opacity [Unknown]

NARRATIVE: CASE EVENT DATE: 20180601
